FAERS Safety Report 5917933-7 (Version None)
Quarter: 2008Q4

REPORT INFORMATION
  Report Type: 
  Country: None (occurrence: None)
  Receive Date: 20081014
  Receipt Date: 20081003
  Transmission Date: 20090506
  Serious: Yes (Death)
  Sender: FDA-Public Use
  Company Number: BR-ROCHE-590184

PATIENT
  Age: 70 Year
  Sex: Female

DRUGS (1)
  1. XELODA [Suspect]
     Route: 048

REACTIONS (4)
  - ABDOMINAL PAIN [None]
  - INFARCTION [None]
  - NAUSEA [None]
  - VOMITING [None]
